FAERS Safety Report 4512001-3 (Version None)
Quarter: 2004Q4

REPORT INFORMATION
  Report Type: 
  Country: None (occurrence: None)
  Receive Date: 20041129
  Receipt Date: 20040604
  Transmission Date: 20050328
  Serious: No
  Sender: FDA-Public Use
  Company Number: US-BRISTOL-MYERS SQUIBB COMPANY-12607214

PATIENT
  Age: 50 Year

DRUGS (4)
  1. SUSTIVA [Suspect]
     Indication: HIV INFECTION
     Route: 048
     Dates: start: 20000131, end: 20040630
  2. ZERIT [Concomitant]
     Dates: start: 19990125, end: 20010521
  3. VIRACEPT [Concomitant]
     Route: 048
  4. EPIVIR [Concomitant]

REACTIONS (1)
  - LIPOMA [None]
